FAERS Safety Report 10262087 (Version 2)
Quarter: 2014Q2

REPORT INFORMATION
  Report Type: Spontaneous
  Country: US (occurrence: US)
  Receive Date: 20140626
  Receipt Date: 20140626
  Transmission Date: 20141212
  Serious: Yes (Hospitalization)
  Sender: FDA-Public Use
  Company Number: US-GLAXOSMITHKLINE-A0862303A

PATIENT
  Sex: Male
  Weight: 107.3 kg

DRUGS (9)
  1. AVANDIA [Suspect]
     Indication: TYPE 2 DIABETES MELLITUS
     Dosage: 4MG PER DAY
     Route: 048
     Dates: start: 20030915, end: 20040409
  2. LITHIUM [Concomitant]
  3. METFORMIN [Concomitant]
  4. SYNTHROID [Concomitant]
  5. GLYBURIDE [Concomitant]
  6. RANITIDINE [Concomitant]
  7. GABAPENTIN [Concomitant]
  8. LOVASTATIN [Concomitant]
  9. IRBESARTAN [Concomitant]

REACTIONS (7)
  - Cerebrovascular accident [Unknown]
  - Cardiac arrest [Unknown]
  - Cardiac failure congestive [Unknown]
  - Coronary artery stenosis [Unknown]
  - Atrial fibrillation [Unknown]
  - Liver injury [Unknown]
  - Fluid overload [Unknown]
